FAERS Safety Report 11982038 (Version 1)
Quarter: 2016Q1

REPORT INFORMATION
  Report Type: Spontaneous
  Country: US (occurrence: None)
  Receive Date: 20160129
  Receipt Date: 20160129
  Transmission Date: 20160526
  Serious: Yes (Disabling)
  Sender: FDA-Public Use
  Company Number: None

PATIENT
  Age: 66 Year
  Sex: Female
  Weight: 56.7 kg

DRUGS (11)
  1. LEVOFLOXACIN 500MG AUROBINDO PHARMACEUTICAL [Suspect]
     Active Substance: LEVOFLOXACIN
     Indication: ENTEROBACTER INFECTION
     Route: 048
     Dates: start: 20151121, end: 20151204
  2. VITAMIN B COMPLEX [Concomitant]
     Active Substance: CYANOCOBALAMIN\DEXPANTHENOL\NIACINAMIDE\PYRIDOXINE HYDROCHLORIDE\RIBOFLAVIN 5^-PHOSPHATE SODIUM\THIAMINE HYDROCHLORIDE\VITAMIN B COMPLEX
  3. CALCIUM [Concomitant]
     Active Substance: CALCIUM
  4. LEVOFLOXACIN 500MG AUROBINDO PHARMACEUTICAL [Suspect]
     Active Substance: LEVOFLOXACIN
     Indication: PATHOGEN RESISTANCE
     Route: 048
     Dates: start: 20151121, end: 20151204
  5. AMBIEN [Concomitant]
     Active Substance: ZOLPIDEM TARTRATE
  6. MAGNESIUM [Concomitant]
     Active Substance: MAGNESIUM
  7. LEVOFLOXACIN 500MG AUROBINDO PHARMACEUTICAL [Suspect]
     Active Substance: LEVOFLOXACIN
     Indication: POSTOPERATIVE WOUND INFECTION
     Route: 048
     Dates: start: 20151121, end: 20151204
  8. TURMERIC [Concomitant]
     Active Substance: TURMERIC
  9. VITAMIN D [Concomitant]
     Active Substance: CHOLECALCIFEROL
  10. FISH OIL [Concomitant]
     Active Substance: FISH OIL
  11. GLUCOSAMINE + CHONDROITIN [Concomitant]

REACTIONS (10)
  - Gait disturbance [None]
  - Inflammation [None]
  - Musculoskeletal pain [None]
  - Fatigue [None]
  - Insomnia [None]
  - Dyspepsia [None]
  - Tendon pain [None]
  - Chondropathy [None]
  - Arthralgia [None]
  - Pain [None]

NARRATIVE: CASE EVENT DATE: 20151121
